FAERS Safety Report 4309248-8 (Version None)
Quarter: 2004Q1

REPORT INFORMATION
  Report Type: 
  Country: None (occurrence: None)
  Receive Date: 20040227
  Receipt Date: 20040224
  Transmission Date: 20041129
  Serious: Yes (Death, Life-Threatening, Hospitalization)
  Sender: FDA-Public Use
  Company Number: HQWYE277924FEB04

PATIENT
  Age: 66 Year
  Sex: Male

DRUGS (6)
  1. CONCOR (BISOPROLOL, TABLET, 0) [Suspect]
     Indication: CARDIAC FAILURE CONGESTIVE
     Dosage: SEE IMAGE
     Route: 048
     Dates: start: 20040206, end: 20040201
  2. CONCOR (BISOPROLOL, TABLET, 0) [Suspect]
     Indication: CARDIAC FAILURE CONGESTIVE
     Dosage: SEE IMAGE
     Route: 048
     Dates: start: 20030730, end: 20040204
  3. ENALAPRIL MALEATE [Concomitant]
  4. ASPIRIN [Concomitant]
  5. POTASSIUM CHLORIDE [Concomitant]
  6. THEOPHYLLINE [Concomitant]

REACTIONS (18)
  - BRONCHITIS ACUTE [None]
  - BRONCHOPNEUMONIA [None]
  - CARDIAC FAILURE [None]
  - CONDITION AGGRAVATED [None]
  - CREPITATIONS [None]
  - DISEASE PROGRESSION [None]
  - DYSPNOEA [None]
  - DYSPNOEA EXERTIONAL [None]
  - DYSPNOEA PAROXYSMAL NOCTURNAL [None]
  - FATIGUE [None]
  - HEART SOUNDS ABNORMAL [None]
  - HYPOTENSION [None]
  - OEDEMA PERIPHERAL [None]
  - ORTHOPNOEA [None]
  - PNEUMOCONIOSIS [None]
  - PULMONARY OEDEMA [None]
  - RESPIRATORY FAILURE [None]
  - VENOUS PRESSURE JUGULAR INCREASED [None]
